FAERS Safety Report 6033267-7 (Version None)
Quarter: 2009Q1

REPORT INFORMATION
  Report Type: 
  Country: None (occurrence: None)
  Receive Date: 20090109
  Receipt Date: 20090103
  Transmission Date: 20090719
  Serious: Yes (Other)
  Sender: FDA-Public Use
  Company Number: US-JNJFOC-20090100742

PATIENT
  Sex: Male
  Weight: 72.58 kg

DRUGS (5)
  1. EXTRA STRENGTH TYLENOL [Suspect]
     Indication: SINUSITIS
     Route: 048
  2. EXTRA STRENGTH TYLENOL [Suspect]
     Indication: PYREXIA
     Route: 048
  3. EXTRA STRENGTH TYLENOL [Suspect]
     Indication: PNEUMONIA
     Route: 048
  4. AMOXICILLIN + CLAVULANATE POTASSIUM [Concomitant]
  5. MULTI-VITAMINS [Concomitant]

REACTIONS (1)
  - HAEMATOCHEZIA [None]
